FAERS Safety Report 20635419 (Version 1)
Quarter: 2022Q1

REPORT INFORMATION
  Report Type: Spontaneous
  Country: US (occurrence: None)
  Receive Date: 20220324
  Receipt Date: 20220324
  Transmission Date: 20220423
  Serious: No
  Sender: FDA-Public Use
  Company Number: None

PATIENT
  Sex: Female

DRUGS (1)
  1. STELARA [Suspect]
     Active Substance: USTEKINUMAB
     Indication: Crohn^s disease
     Dosage: OTHER FREQUENCY : EVERY 6 WEEKS;?
     Route: 058
     Dates: start: 20201118

REACTIONS (8)
  - Feeling abnormal [None]
  - Abdominal pain [None]
  - Abdominal discomfort [None]
  - Constipation [None]
  - Nausea [None]
  - Vomiting [None]
  - Arthralgia [None]
  - Drug ineffective [None]
